FAERS Safety Report 24546371 (Version 1)
Quarter: 2024Q4

REPORT INFORMATION
  Report Type: Other
  Country: CA (occurrence: CA)
  Receive Date: 20241024
  Receipt Date: 20241024
  Transmission Date: 20250115
  Serious: Yes (Hospitalization, Disabling)
  Sender: B BRAUN
  Company Number: CA-B.Braun Medical Inc.-2163346

PATIENT
  Age: 32 Year
  Sex: Female

DRUGS (4)
  1. BUPIVACAINE HYDROCHLORIDE [Suspect]
     Active Substance: BUPIVACAINE HYDROCHLORIDE
     Indication: Spinal anaesthesia
  2. BUPIVACAINE HYDROCHLORIDE [Suspect]
     Active Substance: BUPIVACAINE HYDROCHLORIDE
     Indication: Caesarean section
  3. FENTANYL [Suspect]
     Active Substance: FENTANYL
  4. MORPHINE [Suspect]
     Active Substance: MORPHINE

REACTIONS (9)
  - Bradycardia [Recovered/Resolved with Sequelae]
  - Maternal exposure during pregnancy [Recovered/Resolved with Sequelae]
  - Neuralgia [Recovered/Resolved with Sequelae]
  - Spinal cord injury [Recovered/Resolved with Sequelae]
  - Paralysis [Recovered/Resolved with Sequelae]
  - Anterior spinal artery syndrome [Recovered/Resolved with Sequelae]
  - Urinary retention [Recovered/Resolved with Sequelae]
  - Rhythm idioventricular [Recovered/Resolved with Sequelae]
  - Hypotension [Recovered/Resolved with Sequelae]
